FAERS Safety Report 10066451 (Version 2)
Quarter: 2014Q2

REPORT INFORMATION
  Report Type: Report from Study
  Country: US (occurrence: US)
  Receive Date: 20140408
  Receipt Date: 20140408
  Transmission Date: 20141212
  Serious: Yes (Other)
  Sender: FDA-Public Use
  Company Number: PHEH2013US018714

PATIENT
  Sex: Male

DRUGS (12)
  1. GILENYA [Suspect]
     Indication: MULTIPLE SCLEROSIS
     Dosage: UNK UKN, UNK
     Route: 048
     Dates: start: 20120809
  2. CALCIUM VITAMIN D [Concomitant]
  3. MAGNESIUM [Concomitant]
  4. VITAMIN B12 [Concomitant]
     Dosage: 1 DF, QD
     Route: 048
  5. B COMPLEX [Concomitant]
  6. VITAMIIN C [Concomitant]
  7. ACYCLOVIR [Concomitant]
     Dosage: 800 MG, PRN
     Route: 048
  8. CALCIUM CITRATE + D [Concomitant]
  9. MINOCYCLINE [Concomitant]
     Dosage: 100 MG, QD
     Route: 048
  10. MAGNESIUM OXIDE [Concomitant]
     Dosage: 400 MG, QD
     Route: 048
  11. CALCIUM + VITAMIN D [Concomitant]
     Dosage: Q
     Route: 048
  12. VITAMIN D3 [Concomitant]
     Dosage: 5000 U, QD
     Route: 048

REACTIONS (9)
  - Central nervous system lesion [Unknown]
  - Fatigue [Unknown]
  - Movement disorder [Unknown]
  - Insomnia [Unknown]
  - Reflexes abnormal [Unknown]
  - Gait disturbance [Unknown]
  - Musculoskeletal pain [Unknown]
  - Muscle tightness [Unknown]
  - Headache [Unknown]
